FAERS Safety Report 23133204 (Version 2)
Quarter: 2024Q1

REPORT INFORMATION
  Report Type: Report from Study
  Country: US (occurrence: US)
  Receive Date: 20231101
  Receipt Date: 20240123
  Transmission Date: 20240409
  Serious: No
  Sender: FDA-Public Use
  Company Number: US-002147023-NVSC2023US232916

PATIENT
  Sex: Female

DRUGS (2)
  1. LEQVIO [Suspect]
     Active Substance: INCLISIRAN SODIUM
     Indication: Product used for unknown indication
     Dosage: UNK
     Route: 058
     Dates: start: 20231016
  2. LEQVIO [Suspect]
     Active Substance: INCLISIRAN SODIUM
     Dosage: UNK
     Route: 065

REACTIONS (5)
  - Injection site pain [Recovering/Resolving]
  - COVID-19 [Recovering/Resolving]
  - Asthenia [Recovering/Resolving]
  - Hypoacusis [Recovering/Resolving]
  - Arthralgia [Not Recovered/Not Resolved]
